FAERS Safety Report 4749459-0 (Version None)
Quarter: 2005Q3

REPORT INFORMATION
  Report Type: 
  Country: None (occurrence: None)
  Receive Date: 20050822
  Receipt Date: 20050810
  Transmission Date: 20060218
  Serious: Yes (Hospitalization, Other)
  Sender: FDA-Public Use
  Company Number: US-JNJFOC-20050500179

PATIENT
  Sex: Female
  Weight: 69.4 kg

DRUGS (10)
  1. REMICADE [Suspect]
     Route: 042
  2. REMICADE [Suspect]
     Indication: RHEUMATOID ARTHRITIS
     Route: 042
  3. METHOTREXATE [Concomitant]
  4. FOLIC ACID [Concomitant]
  5. HYDROCODEINE [Concomitant]
  6. PREMARIN [Concomitant]
  7. STEROIDS [Concomitant]
     Indication: PAIN
  8. SYNTHROID [Concomitant]
  9. LASIX [Concomitant]
  10. FLEXERAL [Concomitant]

REACTIONS (4)
  - ARTHRALGIA [None]
  - BREAST CANCER [None]
  - RASH GENERALISED [None]
  - WHITE BLOOD CELL COUNT DECREASED [None]
